FAERS Safety Report 11448367 (Version 1)
Quarter: 2015Q3

REPORT INFORMATION
  Report Type: Spontaneous
  Country: US (occurrence: US)
  Receive Date: 20150831
  Receipt Date: 20150831
  Transmission Date: 20151125
  Serious: No
  Sender: FDA-Public Use
  Company Number: US-ELI_LILLY_AND_COMPANY-US200907001242

PATIENT
  Age: 30 Year
  Sex: Female

DRUGS (5)
  1. CYMBALTA [Suspect]
     Active Substance: DULOXETINE HYDROCHLORIDE
     Indication: PAIN
     Dosage: 30 MG, UNK
     Dates: start: 20090705, end: 20090706
  2. TRIMETHADIONE [Concomitant]
     Active Substance: TRIMETHADIONE
  3. LEVOTHYROXINE. [Concomitant]
     Active Substance: LEVOTHYROXINE
  4. DIAZEPAM. [Concomitant]
     Active Substance: DIAZEPAM
  5. LUNESTA [Concomitant]
     Active Substance: ESZOPICLONE

REACTIONS (16)
  - Flatulence [Recovering/Resolving]
  - Malaise [Recovering/Resolving]
  - Appetite disorder [Unknown]
  - Middle insomnia [Recovering/Resolving]
  - Hangover [Recovering/Resolving]
  - Dizziness [Recovering/Resolving]
  - Coordination abnormal [Recovering/Resolving]
  - Gait disturbance [Recovering/Resolving]
  - Diarrhoea [Recovering/Resolving]
  - Disturbance in attention [Recovering/Resolving]
  - Fatigue [Recovering/Resolving]
  - Nausea [Recovering/Resolving]
  - Yawning [Recovering/Resolving]
  - Intentional product misuse [Recovered/Resolved]
  - Feeling abnormal [Recovering/Resolving]
  - Abdominal discomfort [Recovering/Resolving]

NARRATIVE: CASE EVENT DATE: 20090705
